FAERS Safety Report 5258741-2 (Version None)
Quarter: 2007Q1

REPORT INFORMATION
  Report Type: 
  Country: None (occurrence: None)
  Receive Date: 20070308
  Receipt Date: 20070222
  Transmission Date: 20070707
  Serious: Yes (Hospitalization, Other)
  Sender: FDA-Public Use
  Company Number: US-AMGEN-US038385

PATIENT
  Sex: Female
  Weight: 64 kg

DRUGS (14)
  1. PROCRIT [Suspect]
     Indication: RENAL FAILURE CHRONIC
     Route: 058
     Dates: start: 20020820, end: 20030720
  2. ARANESP [Suspect]
     Indication: DIALYSIS
     Dates: start: 20041006
  3. DILANTIN [Concomitant]
     Dates: start: 20030201, end: 20030522
  4. NORVASC [Concomitant]
  5. METOPROLOL SUCCINATE [Concomitant]
  6. LASIX [Concomitant]
  7. PROCARDIA [Concomitant]
  8. FERROUS SULFATE [Concomitant]
  9. NPH INSULIN [Concomitant]
  10. AVANDIA [Concomitant]
     Dates: start: 20030501
  11. PROGRAF [Concomitant]
     Dates: start: 20050218
  12. CELLCEPT [Concomitant]
     Dates: start: 20050218
  13. PREDNISONE [Concomitant]
     Dates: start: 20050218
  14. ISONIAZID [Concomitant]
     Dates: start: 20030701

REACTIONS (5)
  - ANTI-ERYTHROPOIETIN ANTIBODY POSITIVE [None]
  - APLASIA PURE RED CELL [None]
  - BLOOD IRON ABNORMAL [None]
  - MENINGIOMA [None]
  - STAPHYLOCOCCAL BACTERAEMIA [None]
